FAERS Safety Report 9283259 (Version 1)
Quarter: 2013Q2

REPORT INFORMATION
  Report Type: Spontaneous
  Country: US (occurrence: US)
  Receive Date: 20130510
  Receipt Date: 20130510
  Transmission Date: 20140414
  Serious: No
  Sender: FDA-Public Use
  Company Number: US-GLAXOSMITHKLINE-A0992943A

PATIENT
  Age: 57 Year
  Sex: Female
  Weight: 98.6 kg

DRUGS (10)
  1. TYKERB [Suspect]
     Indication: PRODUCT USED FOR UNKNOWN INDICATION
     Dosage: 1000MG PER DAY
     Route: 048
  2. HERCEPTIN [Concomitant]
  3. TAXOTERE [Concomitant]
  4. LOSARTAN WITH HYDROCHLOROTHIAZIDE [Concomitant]
  5. CITALOPRAM [Concomitant]
  6. HYDROMORPHONE [Concomitant]
  7. METHADONE [Concomitant]
  8. DIPHENOXYLATE HCL+ ATROPINE SULPHATE [Concomitant]
  9. ALPRAZOLAM [Concomitant]
  10. VITAMIN B [Concomitant]

REACTIONS (14)
  - Lymphoedema [Not Recovered/Not Resolved]
  - Pain in extremity [Unknown]
  - Diarrhoea [Unknown]
  - Anxiety [Unknown]
  - Depression [Unknown]
  - Blood potassium increased [Unknown]
  - Rhinorrhoea [Unknown]
  - Dry skin [Unknown]
  - Skin fissures [Unknown]
  - Ocular hyperaemia [Unknown]
  - Ill-defined disorder [Unknown]
  - Cough [Unknown]
  - Dyspnoea [Unknown]
  - Thrombosis [Unknown]
